FAERS Safety Report 14775692 (Version 3)
Quarter: 2019Q3

REPORT INFORMATION
  Report Type: Spontaneous
  Country: US (occurrence: US)
  Receive Date: 20180418
  Receipt Date: 20190717
  Transmission Date: 20191004
  Serious: Yes (Hospitalization, Other)
  Sender: FDA-Public Use
  Company Number: US-ASTRAZENECA-2018SE46574

PATIENT
  Age: 45 Year
  Sex: Female
  Weight: 93 kg

DRUGS (25)
  1. PRILOSEC [Suspect]
     Active Substance: OMEPRAZOLE MAGNESIUM
     Indication: DYSPEPSIA
     Dosage: GENERIC
     Route: 065
     Dates: start: 20120823, end: 20151106
  2. LANTUS [Concomitant]
     Active Substance: INSULIN GLARGINE
  3. TYLENOL [Concomitant]
     Active Substance: ACETAMINOPHEN
  4. ACETAMINOPHEN. [Concomitant]
     Active Substance: ACETAMINOPHEN
     Indication: HEADACHE
  5. COLACE [Concomitant]
     Active Substance: DOCUSATE SODIUM
  6. ALLOPURINOL. [Concomitant]
     Active Substance: ALLOPURINOL
  7. BENADRYL [Concomitant]
     Active Substance: DIPHENHYDRAMINE HYDROCHLORIDE
     Indication: MULTIPLE ALLERGIES
  8. PRILOSEC OTC [Suspect]
     Active Substance: OMEPRAZOLE MAGNESIUM
     Route: 048
     Dates: start: 2002, end: 2015
  9. HUMULIN NOS [Concomitant]
     Active Substance: INSULIN HUMAN
  10. DIFLUCAN [Concomitant]
     Active Substance: FLUCONAZOLE
  11. APRESOLINE HYDROCHLORIDE [Concomitant]
     Active Substance: HYDRALAZINE HYDROCHLORIDE
  12. PRILOSEC [Suspect]
     Active Substance: OMEPRAZOLE MAGNESIUM
     Indication: DYSPEPSIA
     Route: 048
     Dates: start: 2002, end: 2015
  13. LOPRESSOR [Concomitant]
     Active Substance: METOPROLOL TARTRATE
  14. GLUCOPHAGE [Concomitant]
     Active Substance: METFORMIN HYDROCHLORIDE
  15. SIMETHICONE (DIMETHICONE) [Concomitant]
     Active Substance: DIMETHICONE
  16. PRILOSEC [Suspect]
     Active Substance: OMEPRAZOLE MAGNESIUM
     Indication: DYSPEPSIA
     Route: 048
     Dates: start: 2003, end: 2012
  17. LORATADINE. [Concomitant]
     Active Substance: LORATADINE
  18. BACTROBAN [Concomitant]
     Active Substance: MUPIROCIN\MUPIROCIN CALCIUM
  19. ACETAMINOPHEN. [Concomitant]
     Active Substance: ACETAMINOPHEN
     Indication: PAIN
  20. COREG [Concomitant]
     Active Substance: CARVEDILOL
  21. AMLODIPINE [Concomitant]
     Active Substance: AMLODIPINE BESYLATE
  22. RANITIDINE. [Concomitant]
     Active Substance: RANITIDINE
  23. ZESTRIL [Concomitant]
     Active Substance: LISINOPRIL
  24. ASPIRIN. [Concomitant]
     Active Substance: ASPIRIN
  25. CRESTOR [Concomitant]
     Active Substance: ROSUVASTATIN CALCIUM

REACTIONS (4)
  - Chronic kidney disease [Not Recovered/Not Resolved]
  - Renal failure [Unknown]
  - Nephropathy [Unknown]
  - Acute kidney injury [Unknown]

NARRATIVE: CASE EVENT DATE: 2005
